FAERS Safety Report 23105154 (Version 1)
Quarter: 2023Q4

REPORT INFORMATION
  Report Type: Report from Study
  Country: JP (occurrence: None)
  Receive Date: 20231025
  Receipt Date: 20231025
  Transmission Date: 20240109
  Serious: Yes (Hospitalization)
  Sender: FDA-Public Use
  Company Number: 2023A240557

PATIENT
  Age: 73 Year
  Sex: Male

DRUGS (11)
  1. DATOPOTAMAB DERUXTECAN [Suspect]
     Active Substance: DATOPOTAMAB DERUXTECAN
     Indication: Non-small cell lung cancer metastatic
     Route: 042
     Dates: start: 20230908, end: 20230929
  2. DURVALUMAB [Suspect]
     Active Substance: DURVALUMAB
     Indication: Non-small cell lung cancer metastatic
     Route: 042
     Dates: start: 20230908, end: 20230929
  3. CARBOPLATIN [Suspect]
     Active Substance: CARBOPLATIN
     Indication: Non-small cell lung cancer metastatic
     Dosage: 5 AUC
     Route: 042
     Dates: start: 20230908, end: 20230929
  4. MAGNESIUM OXIDE TABLETS [Concomitant]
     Route: 048
     Dates: start: 20230801
  5. CALCIUM CARBONATE\CHOLECALCIFEROL\MAGNESIUM CARBONATE [Concomitant]
     Active Substance: CALCIUM CARBONATE\CHOLECALCIFEROL\MAGNESIUM CARBONATE
     Route: 048
     Dates: start: 20230829
  6. NARURAPID TABLETS [Concomitant]
     Route: 048
     Dates: start: 20230815
  7. HYALURONATE NA OPHTHALMIC SOLUTION [Concomitant]
     Route: 047
     Dates: start: 20230907
  8. ESZOPICLONE [Concomitant]
     Active Substance: ESZOPICLONE
     Route: 048
     Dates: start: 20230906
  9. RANMARK SUBCUTANEOUS INJECTION [Concomitant]
     Route: 058
     Dates: start: 20230815
  10. MOUTHWASH(ACTIV INGREDIENT UNKNOWN) [Concomitant]
     Route: 051
     Dates: start: 20230825
  11. VONOPRAZAN FUMARATE [Concomitant]
     Active Substance: VONOPRAZAN FUMARATE
     Route: 048
     Dates: start: 20230928

REACTIONS (1)
  - Drug-induced liver injury [Not Recovered/Not Resolved]

NARRATIVE: CASE EVENT DATE: 20231019
